FAERS Safety Report 14772256 (Version 1)
Quarter: 2018Q2

REPORT INFORMATION
  Report Type: Spontaneous
  Country: US (occurrence: US)
  Receive Date: 20180418
  Receipt Date: 20180418
  Transmission Date: 20180711
  Serious: Yes (Death)
  Sender: FDA-Public Use
  Company Number: US-CIPLA LTD.-2018US15428

PATIENT

DRUGS (3)
  1. TEMSIROLIMUS [Suspect]
     Active Substance: TEMSIROLIMUS
     Indication: LIP AND/OR ORAL CAVITY CANCER
     Dosage: 25 MG, ON DAYS 1 AND 8 OF EACH 21-DAY CYCLE
     Route: 042
  2. PACLITAXEL. [Suspect]
     Active Substance: PACLITAXEL
     Indication: LIP AND/OR ORAL CAVITY CANCER
     Dosage: 80 MG/M2, ON DAYS 1 AND 8 OF EACH 21-DAY CYCLE
     Route: 042
  3. CARBOPLATIN. [Suspect]
     Active Substance: CARBOPLATIN
     Indication: LIP AND/OR ORAL CAVITY CANCER
     Dosage: AUC 1.5, ON DAYS 1 AND 8 OF EACH 21-DAY CYCLE
     Route: 042

REACTIONS (1)
  - Death [Fatal]
